FAERS Safety Report 8190894-9 (Version None)
Quarter: 2012Q1

REPORT INFORMATION
  Report Type: 
  Country: None (occurrence: None)
  Receive Date: 20120307
  Receipt Date: 20120229
  Transmission Date: 20120608
  Serious: Yes (Hospitalization)
  Sender: FDA-Public Use
  Company Number: US-BAYER-201028464NA

PATIENT
  Age: 37 Year
  Sex: Female
  Weight: 70 kg

DRUGS (6)
  1. LUNESTA [Concomitant]
     Dosage: UNK
     Dates: start: 20080519, end: 20100314
  2. TOPIRAMATE [Concomitant]
     Dosage: UNK
     Dates: start: 20090401, end: 20100314
  3. FLUOXETINE HCL [Concomitant]
     Dosage: UNK
     Dates: start: 20061211, end: 20100314
  4. YAZ [Suspect]
     Indication: PREMENSTRUAL SYNDROME
     Route: 048
     Dates: start: 20070101, end: 20100615
  5. VITAMIN TAB [Concomitant]
     Dosage: UNK
     Dates: start: 20100314
  6. YAZ [Suspect]
     Indication: MENSTRUATION IRREGULAR

REACTIONS (7)
  - DYSPNOEA [None]
  - INJURY [None]
  - PULMONARY EMBOLISM [None]
  - ANXIETY [None]
  - BACK PAIN [None]
  - PAIN [None]
  - EMOTIONAL DISTRESS [None]
